FAERS Safety Report 19806616 (Version 2)
Quarter: 2021Q3

REPORT INFORMATION
  Report Type: Other
  Country: US (occurrence: US)
  Receive Date: 20210908
  Receipt Date: 20210917
  Transmission Date: 20211014
  Serious: Yes (Other)
  Sender: FDA-Public Use
  Company Number: US-ROCHE-2902254

PATIENT
  Age: 53 Year
  Sex: Female

DRUGS (18)
  1. RITUXIMAB. [Suspect]
     Active Substance: RITUXIMAB
     Dosage: ONCE
     Route: 041
  2. OCREVUS [Suspect]
     Active Substance: OCRELIZUMAB
     Dosage: SINGLE?DOSE INFUSIONS (MONTHS 12, 18 AND 24)
     Route: 042
  3. ACETAMINOPHEN. [Concomitant]
     Active Substance: ACETAMINOPHEN
     Indication: PREMEDICATION
     Route: 048
  4. DAPSONE. [Concomitant]
     Active Substance: DAPSONE
  5. MONTELUKAST [Concomitant]
     Active Substance: MONTELUKAST SODIUM
     Route: 048
  6. OCREVUS [Suspect]
     Active Substance: OCRELIZUMAB
     Indication: PEMPHIGUS
     Dosage: LOADING DOSE (MONTH 0 AND MONTH 6)
     Route: 042
  7. METHYLPREDNISOLONE. [Concomitant]
     Active Substance: METHYLPREDNISOLONE
     Indication: PREMEDICATION
     Route: 042
  8. METHYLPREDNISOLONE. [Concomitant]
     Active Substance: METHYLPREDNISOLONE
     Route: 042
  9. DIPHENHYDRAMINE. [Concomitant]
     Active Substance: DIPHENHYDRAMINE
     Indication: PREMEDICATION
     Route: 042
  10. PREDNISONE. [Concomitant]
     Active Substance: PREDNISONE
     Indication: PEMPHIGUS
  11. METHOTREXATE. [Concomitant]
     Active Substance: METHOTREXATE
     Dosage: 15 MG/WEEK
  12. ASPIRIN. [Concomitant]
     Active Substance: ASPIRIN
     Route: 048
  13. FAMOTIDINE. [Concomitant]
     Active Substance: FAMOTIDINE
     Route: 042
  14. DAPSONE. [Concomitant]
     Active Substance: DAPSONE
     Indication: PEMPHIGUS
  15. METHOTREXATE. [Concomitant]
     Active Substance: METHOTREXATE
     Indication: PEMPHIGUS
     Dosage: 10 MG/WEEK
  16. CYCLOPHOSPHAMIDE. [Concomitant]
     Active Substance: CYCLOPHOSPHAMIDE
  17. RITUXIMAB. [Suspect]
     Active Substance: RITUXIMAB
     Indication: PEMPHIGUS
     Dosage: DAY 0; DAY 15 (LOADING DOSE)
     Route: 041
  18. RITUXIMAB. [Suspect]
     Active Substance: RITUXIMAB
     Dosage: ONCE? DESENSITIZATION PROTOCOL UNDER DIRECT OBSERVATION; INCREASING DOSES OF RITUXIMAB WERE GIVEN IN
     Route: 041

REACTIONS (5)
  - Nausea [Unknown]
  - Anaphylactic reaction [Unknown]
  - Urticaria [Unknown]
  - Pruritus [Unknown]
  - Flushing [Unknown]
